FAERS Safety Report 8916809 (Version 2)
Quarter: 2012Q4

REPORT INFORMATION
  Report Type: Report from Study
  Country: US (occurrence: US)
  Receive Date: 20121120
  Receipt Date: 20121224
  Transmission Date: 20130627
  Serious: Yes (Death)
  Sender: FDA-Public Use
  Company Number: US-ROCHE-1157250

PATIENT
  Age: 58 Year
  Sex: Female

DRUGS (35)
  1. BEVACIZUMAB [Suspect]
     Indication: OVARIAN CANCER
     Route: 042
     Dates: start: 20090515, end: 20120626
  2. BEVACIZUMAB [Suspect]
     Route: 042
     Dates: start: 20090605
  3. BEVACIZUMAB [Suspect]
     Route: 042
     Dates: start: 20090626
  4. BEVACIZUMAB [Suspect]
     Route: 042
     Dates: start: 20090717
  5. BEVACIZUMAB [Suspect]
     Route: 042
     Dates: start: 20090807
  6. BEVACIZUMAB [Suspect]
     Route: 042
     Dates: start: 20091013
  7. BEVACIZUMAB [Suspect]
     Route: 042
     Dates: start: 20091105
  8. BEVACIZUMAB [Suspect]
     Route: 042
     Dates: start: 20091202
  9. BEVACIZUMAB [Suspect]
     Route: 042
     Dates: start: 20091223
  10. BEVACIZUMAB [Suspect]
     Route: 042
     Dates: start: 20100115
  11. BEVACIZUMAB [Suspect]
     Route: 042
     Dates: start: 20100212
  12. BEVACIZUMAB [Suspect]
     Route: 042
     Dates: start: 20100305
  13. BEVACIZUMAB [Suspect]
     Route: 042
     Dates: start: 20100325
  14. BEVACIZUMAB [Suspect]
     Route: 042
     Dates: start: 20100412
  15. BEVACIZUMAB [Suspect]
     Route: 042
     Dates: start: 20100505
  16. BEVACIZUMAB [Suspect]
     Route: 042
     Dates: start: 20100527
  17. BEVACIZUMAB [Suspect]
     Route: 042
     Dates: start: 20100617
  18. BEVACIZUMAB [Suspect]
     Route: 042
     Dates: start: 20100708
  19. BEVACIZUMAB [Suspect]
     Route: 042
     Dates: start: 20100805
  20. BEVACIZUMAB [Suspect]
     Route: 042
     Dates: start: 20100830
  21. BEVACIZUMAB [Suspect]
     Route: 042
     Dates: start: 20100920
  22. BEVACIZUMAB [Suspect]
     Route: 042
     Dates: start: 20101119
  23. BEVACIZUMAB [Suspect]
     Route: 042
     Dates: start: 20101209
  24. BEVACIZUMAB [Suspect]
     Route: 042
     Dates: start: 20101229
  25. BEVACIZUMAB [Suspect]
     Route: 042
     Dates: start: 20110126
  26. BEVACIZUMAB [Suspect]
     Route: 042
     Dates: start: 20110217
  27. BEVACIZUMAB [Suspect]
     Route: 042
     Dates: start: 20110311
  28. BEVACIZUMAB [Suspect]
     Route: 042
     Dates: start: 20110401
  29. BEVACIZUMAB [Suspect]
     Route: 042
     Dates: start: 20110419
  30. BEVACIZUMAB [Suspect]
     Route: 042
     Dates: start: 20110512
  31. BEVACIZUMAB [Suspect]
     Route: 042
     Dates: start: 20110603
  32. BEVACIZUMAB [Suspect]
     Route: 042
     Dates: start: 20120403
  33. BEVACIZUMAB [Suspect]
     Route: 042
     Dates: start: 20120423
  34. BEVACIZUMAB [Suspect]
     Route: 042
     Dates: start: 20120613
  35. BEVACIZUMAB [Suspect]
     Route: 042
     Dates: start: 20120626

REACTIONS (1)
  - Ovarian cancer [Fatal]
